FAERS Safety Report 15764091 (Version 2)
Quarter: 2019Q1

REPORT INFORMATION
  Report Type: Spontaneous
  Country: US (occurrence: US)
  Receive Date: 20181227
  Receipt Date: 20190325
  Transmission Date: 20190417
  Serious: No
  Sender: FDA-Public Use
  Company Number: US-CELGENEUS-USA-20181207471

PATIENT
  Sex: Female

DRUGS (1)
  1. OTEZLA [Suspect]
     Active Substance: APREMILAST
     Indication: PSORIATIC ARTHROPATHY
     Dosage: 60 MILLIGRAM
     Route: 048
     Dates: start: 20181128

REACTIONS (6)
  - Vomiting [Unknown]
  - Inflammation [Unknown]
  - Decreased appetite [Unknown]
  - Abdominal pain upper [Unknown]
  - Malaise [Unknown]
  - Underweight [Unknown]

NARRATIVE: CASE EVENT DATE: 2018
